FAERS Safety Report 9284051 (Version 1)
Quarter: 2013Q2

REPORT INFORMATION
  Report Type: Spontaneous
  Country: MY (occurrence: MY)
  Receive Date: 20130510
  Receipt Date: 20130510
  Transmission Date: 20140414
  Serious: Yes (Death)
  Sender: FDA-Public Use
  Company Number: MY-BAYER-2013-052271

PATIENT
  Age: 56 Year
  Sex: Female

DRUGS (2)
  1. REGORAFENIB [Suspect]
     Indication: COLORECTAL CANCER
     Dosage: 160 MG, QD
     Route: 048
     Dates: start: 20130409, end: 20130419
  2. REGORAFENIB [Suspect]
     Indication: COLORECTAL CANCER
     Dosage: 80 MG, QD
     Route: 048
     Dates: start: 20130420, end: 20130427

REACTIONS (6)
  - Death [Fatal]
  - Palmar-plantar erythrodysaesthesia syndrome [Unknown]
  - Nausea [None]
  - Tongue ulceration [Unknown]
  - Frequent bowel movements [None]
  - Liver function test abnormal [Unknown]
